FAERS Safety Report 6332616-X (Version None)
Quarter: 2009Q3

REPORT INFORMATION
  Report Type: 
  Country: None (occurrence: None)
  Receive Date: 20090828
  Receipt Date: 20090824
  Transmission Date: 20100115
  Serious: Yes (Other)
  Sender: FDA-Public Use
  Company Number: JP-ROCHE-652129

PATIENT
  Age: 33 Year
  Sex: Female

DRUGS (3)
  1. CAPECITABINE [Suspect]
     Indication: BREAST CANCER METASTATIC
     Dosage: GIVEN IN EQUAL PARTS IN MORNING AND EVENING; CYCLE REPEATED EVERY 28 DAYS FOR SIX CYCLES
     Route: 065
  2. TRASTUZUMAB [Suspect]
     Indication: BREAST CANCER METASTATIC
     Dosage: INITIAL DOSE, FORM REPORTED AS INFUSION.
     Route: 065
  3. TRASTUZUMAB [Suspect]
     Dosage: ADMINISTERED DURING 90 MINUTES
     Route: 065

REACTIONS (3)
  - BRACHIAL PLEXOPATHY [None]
  - DIARRHOEA [None]
  - NEUTROPENIA [None]
